FAERS Safety Report 6191010-5 (Version None)
Quarter: 2009Q2

REPORT INFORMATION
  Report Type: 
  Country: None (occurrence: None)
  Receive Date: 20090513
  Receipt Date: 20090430
  Transmission Date: 20091009
  Serious: Yes (Death)
  Sender: FDA-Public Use
  Company Number: OPER20090076

PATIENT
  Age: 40 Year
  Sex: Male
  Weight: 92.0802 kg

DRUGS (11)
  1. OPANA ER [Suspect]
     Indication: BACK PAIN
     Dosage: 60 MG, BID, PER ORAL
     Route: 048
     Dates: start: 20071201, end: 20081001
  2. METHADONE [Suspect]
     Dates: end: 20081001
  3. FENTANYL [Suspect]
     Dates: end: 20081001
  4. TRAZODONE HCL [Concomitant]
  5. VICODIN [Concomitant]
  6. BUPROPION HCL [Concomitant]
  7. CITALOPRAM HYDROBROMIDE [Concomitant]
  8. MEPROBAMATE [Concomitant]
  9. CARISOPRODOL [Concomitant]
  10. NEURONTIN [Concomitant]
  11. ATROPINE [Concomitant]

REACTIONS (7)
  - ACCIDENTAL DEATH [None]
  - ATROPHY [None]
  - DRUG TOXICITY [None]
  - HEPATOSPLENOMEGALY [None]
  - SCAR [None]
  - THYMUS DISORDER [None]
  - VENTRICULAR HYPERTROPHY [None]
